FAERS Safety Report 9943147 (Version 1)
Quarter: 2014Q1

REPORT INFORMATION
  Report Type: Spontaneous
  Country: US (occurrence: US)
  Receive Date: 20140303
  Receipt Date: 20140303
  Transmission Date: 20141002
  Serious: Yes (Other)
  Sender: FDA-Public Use
  Company Number: US-GLAXOSMITHKLINE-A1062093A

PATIENT
  Sex: Male

DRUGS (5)
  1. ADVAIR [Suspect]
     Indication: PRODUCT USED FOR UNKNOWN INDICATION
     Route: 055
  2. SPIRIVA [Suspect]
     Indication: PRODUCT USED FOR UNKNOWN INDICATION
  3. SPIRIVA [Concomitant]
  4. COUMADIN [Concomitant]
  5. WATER PILL [Concomitant]

REACTIONS (2)
  - Pneumonia [Not Recovered/Not Resolved]
  - Drug administration error [Unknown]
